FAERS Safety Report 24192445 (Version 2)
Quarter: 2024Q3

REPORT INFORMATION
  Report Type: Spontaneous
  Country: BR (occurrence: BR)
  Receive Date: 20240809
  Receipt Date: 20240814
  Transmission Date: 20241017
  Serious: Yes (Death, Hospitalization)
  Sender: AMGEN
  Company Number: BR-AMGEN-BRASP2024154606

PATIENT
  Age: 70 Year

DRUGS (5)
  1. PEGFILGRASTIM [Suspect]
     Active Substance: PEGFILGRASTIM
     Indication: Colon cancer
     Dosage: UNK, Q2WK (14/14 DAYS)
     Route: 065
     Dates: start: 20240418, end: 20240707
  2. LEUCOVORIN CALCIUM [Concomitant]
     Active Substance: LEUCOVORIN CALCIUM
  3. RAMUCIRUMAB [Concomitant]
     Active Substance: RAMUCIRUMAB
  4. FLUOROURACIL [Concomitant]
     Active Substance: FLUOROURACIL
  5. IRINOTECAN HYDROCHLORIDE [Concomitant]
     Active Substance: IRINOTECAN HYDROCHLORIDE

REACTIONS (1)
  - Febrile neutropenia [Fatal]

NARRATIVE: CASE EVENT DATE: 20240101
